FAERS Safety Report 25317574 (Version 1)
Quarter: 2025Q2

REPORT INFORMATION
  Report Type: Spontaneous
  Country: TR (occurrence: TR)
  Receive Date: 20250515
  Receipt Date: 20250515
  Transmission Date: 20250717
  Serious: Yes (Other)
  Sender: ALKEM
  Company Number: TR-ALKEM LABORATORIES LIMITED-TR-ALKEM-2024-13460

PATIENT
  Age: 57 Year
  Sex: Female

DRUGS (4)
  1. AZATHIOPRINE [Suspect]
     Active Substance: AZATHIOPRINE
     Indication: Choroiditis
     Route: 065
  2. AZATHIOPRINE [Suspect]
     Active Substance: AZATHIOPRINE
     Indication: Choroidal neovascularisation
  3. ADALIMUMAB [Suspect]
     Active Substance: ADALIMUMAB
     Indication: Choroiditis
     Route: 065
  4. ADALIMUMAB [Suspect]
     Active Substance: ADALIMUMAB
     Indication: Choroidal neovascularisation

REACTIONS (4)
  - Cytopenia [Unknown]
  - Choroidal neovascularisation [Unknown]
  - Disease recurrence [Unknown]
  - Choroiditis [Unknown]
